FAERS Safety Report 18721893 (Version 1)
Quarter: 2021Q1

REPORT INFORMATION
  Report Type: Other
  Country: US (occurrence: US)
  Receive Date: 20210111
  Receipt Date: 20210111
  Transmission Date: 20210419
  Serious: Yes (Hospitalization)
  Sender: FDA-Public Use
  Company Number: US-ROCHE-2742403

PATIENT
  Age: 49 Year
  Sex: Female
  Weight: 58.57 kg

DRUGS (3)
  1. FOLIC ACID. [Concomitant]
     Active Substance: FOLIC ACID
     Indication: THALASSAEMIA BETA
     Dosage: ONGOING :YES
     Route: 048
  2. NEURONTIN [Concomitant]
     Active Substance: GABAPENTIN
     Indication: NEURALGIA
     Route: 048
  3. OCREVUS [Suspect]
     Active Substance: OCRELIZUMAB
     Indication: RELAPSING-REMITTING MULTIPLE SCLEROSIS
     Dosage: RECEIVES OCREVUS TREATMENT EVERY 5 TO 6 MONTHS ;ONGOING: YES?PRESCRIBED AS 300 MG ON DAY 1 AND DAY 1
     Route: 042
     Dates: start: 2019

REACTIONS (9)
  - Off label use [Unknown]
  - Foot fracture [Recovered/Resolved]
  - COVID-19 [Not Recovered/Not Resolved]
  - Chest pain [Recovered/Resolved]
  - Fall [Unknown]
  - Weight decreased [Recovering/Resolving]
  - Disease recurrence [Recovered/Resolved]
  - Intentional product use issue [Unknown]
  - Lethargy [Unknown]

NARRATIVE: CASE EVENT DATE: 2019
